FAERS Safety Report 5455975-9 (Version None)
Quarter: 2007Q3

REPORT INFORMATION
  Report Type: 
  Country: None (occurrence: None)
  Receive Date: 20070918
  Receipt Date: 20070907
  Transmission Date: 20080115
  Serious: Yes (Hospitalization)
  Sender: FDA-Public Use
  Company Number: JP-ROCHE-514934

PATIENT
  Age: 76 Year
  Sex: Male
  Weight: 57 kg

DRUGS (2)
  1. ROCEPHIN [Suspect]
     Indication: URINARY TRACT INFECTION
     Route: 041
     Dates: start: 20070817, end: 20070821
  2. LEVOFLOXACIN [Concomitant]
     Route: 048
     Dates: start: 20070820, end: 20070823

REACTIONS (2)
  - INFLAMMATION [None]
  - PYREXIA [None]
